FAERS Safety Report 6490582-0 (Version None)
Quarter: 2009Q4

REPORT INFORMATION
  Report Type: 
  Country: None (occurrence: None)
  Receive Date: 20091208
  Receipt Date: 20091130
  Transmission Date: 20100525
  Serious: Yes (Hospitalization, Other)
  Sender: FDA-Public Use
  Company Number: 2009SP031111

PATIENT
  Age: 54 Year
  Sex: Female
  Weight: 97.0698 kg

DRUGS (4)
  1. TEMODAR [Suspect]
     Indication: DRUG USE FOR UNKNOWN INDICATION
     Dosage: 160 MG;QD;PO; 300 MG;QD;PO
     Route: 048
     Dates: start: 20090810, end: 20090928
  2. TEMODAR [Suspect]
     Indication: DRUG USE FOR UNKNOWN INDICATION
     Dosage: 160 MG;QD;PO; 300 MG;QD;PO
     Route: 048
     Dates: start: 20091109, end: 20091113
  3. MAVIK [Concomitant]
  4. DECADRON [Concomitant]

REACTIONS (5)
  - ASTHENIA [None]
  - BLOOD BILIRUBIN INCREASED [None]
  - BLOOD POTASSIUM DECREASED [None]
  - PANCYTOPENIA [None]
  - PYREXIA [None]
